FAERS Safety Report 7067882-9 (Version None)
Quarter: 2010Q4

REPORT INFORMATION
  Report Type: 
  Country: None (occurrence: None)
  Receive Date: 20101028
  Receipt Date: 20101014
  Transmission Date: 20110411
  Serious: Yes (Hospitalization, Other)
  Sender: FDA-Public Use
  Company Number: GB-AMGEN-QUU429671

PATIENT

DRUGS (13)
  1. ETANERCEPT [Suspect]
     Indication: RHEUMATOID ARTHRITIS
     Dosage: 25 MG, 2 TIMES/WK
     Route: 058
     Dates: start: 20070111, end: 20100615
  2. EZETIMIBE [Concomitant]
     Indication: BLOOD CHOLESTEROL
     Dosage: UNK UNK, QD
     Route: 048
  3. EZETIMIBE [Concomitant]
     Route: 048
  4. BENDROFLUMETHIAZIDE [Concomitant]
     Dosage: 2.5 MG, QD
     Route: 048
  5. FELODIPINE [Concomitant]
     Dosage: UNK UNK, QD
     Route: 048
  6. FELODIPINE [Concomitant]
     Route: 048
  7. LEVOTHYROXINE [Concomitant]
     Indication: HYPOTHYROIDISM
     Route: 048
  8. CO-CODAMOL [Concomitant]
     Indication: RHEUMATOID ARTHRITIS
     Dosage: 1 DOSE EVERY 1 PRN
     Route: 048
  9. CO-CODAMOL [Concomitant]
     Indication: PAIN
  10. METHOTREXATE [Concomitant]
     Dosage: UNKNOWN
     Dates: start: 20030811, end: 20030915
  11. ACETAMINOPHEN W/ PROPOXYPHENE HCL [Concomitant]
     Dosage: UNKNOWN
  12. FOLIC ACID [Concomitant]
     Dosage: UNKNOWN
  13. LEVOTHYROXINE SODIUM [Concomitant]

REACTIONS (1)
  - OESOPHAGEAL SQUAMOUS CELL CARCINOMA METASTATIC [None]
